FAERS Safety Report 9706723 (Version 2)
Quarter: 2014Q1

REPORT INFORMATION
  Report Type: Spontaneous
  Country: US (occurrence: US)
  Receive Date: 20131125
  Receipt Date: 20140127
  Transmission Date: 20141002
  Serious: Yes (Other)
  Sender: FDA-Public Use
  Company Number: US-BAYER-2013-141145

PATIENT
  Age: 41 Year
  Sex: Female

DRUGS (5)
  1. NAPROSYN [Concomitant]
  2. VICODIN [Concomitant]
  3. MIRENA [Suspect]
     Dosage: 20 MCG/24HR, CONT
     Route: 015
     Dates: start: 2009, end: 20120830
  4. LISINOPRIL [Concomitant]
     Dosage: 20-25 MG EVERY DAY
     Route: 048
  5. CELEXA [Concomitant]
     Dosage: 10 MG TAKE 1 TABLET EVERY DAY
     Route: 048

REACTIONS (6)
  - Device dislocation [None]
  - Genital haemorrhage [None]
  - Injury [None]
  - Abdominal pain [None]
  - Anhedonia [None]
  - Emotional distress [None]
